FAERS Safety Report 4524046-8 (Version None)
Quarter: 2004Q4

REPORT INFORMATION
  Report Type: 
  Country: None (occurrence: None)
  Receive Date: 20041209
  Receipt Date: 20041126
  Transmission Date: 20050328
  Serious: Yes (Life-Threatening)
  Sender: FDA-Public Use
  Company Number: 2004-BP-12385NB

PATIENT
  Age: 50 Year
  Sex: Male

DRUGS (2)
  1. BI-SIFROL            (PRAMIPEXOLE DIHYDROCHLORIDE) [Suspect]
     Indication: PARKINSON'S DISEASE
     Dosage: 1.5 MG, PO
     Route: 048
  2. SINEMET [Concomitant]

REACTIONS (1)
  - SUDDEN ONSET OF SLEEP [None]
